FAERS Safety Report 8254665-7 (Version None)
Quarter: 2012Q2

REPORT INFORMATION
  Report Type: 
  Country: None (occurrence: None)
  Receive Date: 20120403
  Receipt Date: 20120326
  Transmission Date: 20120825
  Serious: Yes (Death, Hospitalization)
  Sender: FDA-Public Use
  Company Number: JP-ELI_LILLY_AND_COMPANY-JP201108000898

PATIENT
  Sex: Female

DRUGS (2)
  1. FORTEO [Suspect]
     Dosage: UNK
     Route: 058
  2. FORTEO [Suspect]
     Route: 058

REACTIONS (11)
  - INFLAMMATION [None]
  - DYSPHAGIA [None]
  - DECREASED APPETITE [None]
  - FLUID INTAKE REDUCED [None]
  - FATIGUE [None]
  - PRODUCTIVE COUGH [None]
  - INCORRECT STORAGE OF DRUG [None]
  - PNEUMONIA [None]
  - PYREXIA [None]
  - MUSCULAR WEAKNESS [None]
  - DYSPNOEA [None]
